FAERS Safety Report 6358372-7 (Version None)
Quarter: 2009Q3

REPORT INFORMATION
  Report Type: 
  Country: None (occurrence: None)
  Receive Date: 20090916
  Receipt Date: 20090908
  Transmission Date: 20100115
  Serious: Yes (Hospitalization, Other)
  Sender: FDA-Public Use
  Company Number: US-PFIZER INC-2009267575

PATIENT
  Sex: Female
  Weight: 53.4 kg

DRUGS (4)
  1. BEXTRA [Suspect]
  2. COUMADIN [Concomitant]
  3. ENALAPRIL [Concomitant]
  4. TUSSIONEX [Concomitant]

REACTIONS (1)
  - STEVENS-JOHNSON SYNDROME [None]
